FAERS Safety Report 5853779-6 (Version None)
Quarter: 2008Q3

REPORT INFORMATION
  Report Type: 
  Country: None (occurrence: None)
  Receive Date: 20080822
  Receipt Date: 20080813
  Transmission Date: 20090109
  Serious: Yes (Other)
  Sender: FDA-Public Use
  Company Number: US-AVENTIS-200815298US

PATIENT
  Sex: Male

DRUGS (4)
  1. ALLEGRA [Suspect]
     Dosage: DOSE: 180 MG X2 AT 6PM
  2. ALLEGRA [Suspect]
     Dosage: DOSE: 180 MG X2 AT 3AM
  3. XYZAL [Suspect]
     Dosage: DOSE: 5 MG X2 AT 7:30 PM AND 10PM
  4. XYZAL [Suspect]

REACTIONS (4)
  - ACCIDENTAL OVERDOSE [None]
  - GASTROOESOPHAGEAL REFLUX DISEASE [None]
  - HYPOTENSION [None]
  - MEDICATION ERROR [None]
